FAERS Safety Report 6977007-3 (Version None)
Quarter: 2010Q3

REPORT INFORMATION
  Report Type: 
  Country: None (occurrence: None)
  Receive Date: 20100910
  Receipt Date: 20100902
  Transmission Date: 20110219
  Serious: Yes (Hospitalization)
  Sender: FDA-Public Use
  Company Number: DE-ROCHE-725229

PATIENT
  Sex: Male
  Weight: 99.1 kg

DRUGS (4)
  1. CAPECITABINE [Suspect]
     Indication: COLORECTAL CANCER STAGE IV
     Dosage: DOSE: 2000 MG TWICE DAILY FROM DAY1- DAY 14.
     Route: 048
     Dates: start: 20090306, end: 20100827
  2. BEVACIZUMAB [Suspect]
     Indication: COLORECTAL CANCER STAGE IV
     Dosage: LAST DOSE PRIOR TO SAE ON 20 AUGUST 2010 AND THERAPY INTRRUPTED ON 27 AUGUST 2010.
     Route: 042
     Dates: start: 20090306, end: 20100820
  3. OXALIPLATIN [Suspect]
     Indication: COLORECTAL CANCER STAGE IV
     Dosage: DATE OF LAST DOSE PRIOR TO SAE: 20 AUGUST 2010 AND THERAPY INTRRUPTED ON 27 AUGUST 2010.
     Route: 042
     Dates: start: 20090306, end: 20100820
  4. IMATINIB [Suspect]
     Indication: COLORECTAL CANCER STAGE IV
     Dosage: DOSE: 300 MG DAILY FROM DAY-1 TO DAY 21.
     Route: 048
     Dates: start: 20090306, end: 20100827

REACTIONS (1)
  - PANCREATITIS [None]
